FAERS Safety Report 11065771 (Version 1)
Quarter: 2015Q2

REPORT INFORMATION
  Report Type: Spontaneous
  Country: US (occurrence: None)
  Receive Date: 20150423
  Receipt Date: 20150423
  Transmission Date: 20150821
  Serious: Yes (Hospitalization)
  Sender: FDA-Public Use
  Company Number: LIT-15-0016-W

PATIENT
  Age: 44 Year
  Sex: Male

DRUGS (4)
  1. DEER ANTER VELVET [Concomitant]
  2. SILDENAFIL. [Concomitant]
     Active Substance: SILDENAFIL
  3. LAMOTRIGINE. [Suspect]
     Active Substance: LAMOTRIGINE
     Indication: SEIZURE
  4. GINSENG [Concomitant]
     Active Substance: ASIAN GINSENG

REACTIONS (2)
  - Drug reaction with eosinophilia and systemic symptoms [None]
  - Drug interaction [None]

NARRATIVE: CASE EVENT DATE: 2015
